FAERS Safety Report 20562878 (Version 2)
Quarter: 2022Q1

REPORT INFORMATION
  Report Type: Other
  Country: US (occurrence: None)
  Receive Date: 20220307
  Receipt Date: 20220323
  Transmission Date: 20220423
  Serious: No
  Sender: FDA-Public Use
  Company Number: US-ROCHE-3039826

PATIENT
  Age: 51 Year
  Sex: Female
  Weight: 165 kg

DRUGS (2)
  1. OCREVUS [Suspect]
     Active Substance: OCRELIZUMAB
     Indication: Multiple sclerosis
     Dosage: YES, 300 MG ON DAY 1 AND DAY 15 AND THEN 600 MG EVERY 6 MONTHS
     Route: 065
     Dates: start: 20200828
  2. MODERNA COVID-19 VACCINE [Concomitant]
     Active Substance: ELASOMERAN
     Dosage: DATE OF COVID VACCINATION: 3/22/21, 4/19/21

REACTIONS (1)
  - COVID-19 [Recovered/Resolved]

NARRATIVE: CASE EVENT DATE: 20220114
